FAERS Safety Report 4889064-9 (Version None)
Quarter: 2005Q4

REPORT INFORMATION
  Report Type: 
  Country: None (occurrence: None)
  Receive Date: 20051216
  Receipt Date: 20050919
  Transmission Date: 20060501
  Serious: No
  Sender: FDA-Public Use
  Company Number: USA0509108497

PATIENT
  Age: 66 Year
  Sex: Male

DRUGS (13)
  1. CIALIS [Suspect]
     Indication: ERECTILE DYSFUNCTION
     Dosage: 20 MG
     Dates: start: 20040101
  2. SALMETEROL [Concomitant]
  3. SINGULAIR [Concomitant]
  4. LIPITOR [Concomitant]
  5. LITHIUM [Concomitant]
  6. ALLEGRA [Concomitant]
  7. ASPIRIN [Concomitant]
  8. BENICAR [Concomitant]
  9. VITAMIN D [Concomitant]
  10. CALCIUM GLUCONATE [Concomitant]
  11. FOSAMAX [Concomitant]
  12. MULTI-VITAMIN [Concomitant]
  13. ANDROGEL [Concomitant]

REACTIONS (1)
  - THERAPEUTIC RESPONSE DECREASED [None]
